FAERS Safety Report 25193283 (Version 1)
Quarter: 2025Q2

REPORT INFORMATION
  Report Type: Spontaneous
  Country: RO (occurrence: RO)
  Receive Date: 20250414
  Receipt Date: 20250414
  Transmission Date: 20250717
  Serious: Yes (Other)
  Sender: ELI LILLY AND CO
  Company Number: RO-Merck Healthcare KGaA-2025016346

PATIENT
  Age: 58 Year

DRUGS (2)
  1. ERBITUX [Suspect]
     Active Substance: CETUXIMAB
     Indication: Laryngeal squamous cell carcinoma
     Dosage: 400 MG/M2, WEEKLY (1/W)
     Route: 065
     Dates: start: 202410
  2. ERBITUX [Suspect]
     Active Substance: CETUXIMAB

REACTIONS (4)
  - Neuropathy peripheral [Unknown]
  - Alopecia [Unknown]
  - Anaemia [Unknown]
  - Skin toxicity [Unknown]
